FAERS Safety Report 4924707-2 (Version None)
Quarter: 2006Q1

REPORT INFORMATION
  Report Type: 
  Country: None (occurrence: None)
  Receive Date: 20060222
  Receipt Date: 20060206
  Transmission Date: 20060701
  Serious: Yes (Hospitalization)
  Sender: FDA-Public Use
  Company Number: 340001L06NOR

PATIENT
  Age: 30 Year
  Sex: Female

DRUGS (4)
  1. OVIDREL [Suspect]
     Indication: IN VITRO FERTILISATION
  2. PUREGON (FOLLITROPIN BETA) [Suspect]
     Indication: IN VITRO FERTILISATION
     Dosage: 150 IU, 1 IN 1 DAYS; 125 IU, 1 IN 1 DAYS;
  3. SYNERELA (NAFARELIN ACETATE) [Suspect]
     Indication: IN VITRO FERTILISATION
  4. CRINONE [Concomitant]

REACTIONS (6)
  - ABDOMINAL PAIN LOWER [None]
  - HYDRONEPHROSIS [None]
  - OVARIAN ENLARGEMENT [None]
  - RENAL FAILURE ACUTE [None]
  - URETERAL DISORDER [None]
  - URETERIC OBSTRUCTION [None]
